FAERS Safety Report 20353885 (Version 3)
Quarter: 2023Q2

REPORT INFORMATION
  Report Type: Spontaneous
  Country: IT (occurrence: IT)
  Receive Date: 20220120
  Receipt Date: 20230512
  Transmission Date: 20230722
  Serious: Yes (Death, Life-Threatening, Hospitalization, Other)
  Sender: FDA-Public Use
  Company Number: IT-EMA-DD-20211223-Bisht_p-110041

PATIENT
  Age: 66 Year
  Sex: Male

DRUGS (12)
  1. ACYCLOVIR [Suspect]
     Active Substance: ACYCLOVIR
     Indication: Herpes simplex
     Dosage: 800 MG, TID (3/DAY)
     Route: 065
  2. AZITHROMYCIN [Interacting]
     Active Substance: AZITHROMYCIN
     Indication: COVID-19
     Dosage: 500 MG/ DAY
     Route: 065
  3. AZITHROMYCIN [Interacting]
     Active Substance: AZITHROMYCIN
     Indication: Off label use
     Dosage: 40 MILLIGRAM, DAILY
     Route: 065
  4. MIDAZOLAM [Suspect]
     Active Substance: MIDAZOLAM
     Indication: Confusional state
     Dosage: UNK
     Route: 065
  5. MORPHINE [Suspect]
     Active Substance: MORPHINE
     Indication: Product used for unknown indication
     Dosage: UNK
     Route: 065
  6. TOCILIZUMAB [Suspect]
     Active Substance: TOCILIZUMAB
     Indication: COVID-19
     Dosage: 162 MG, IN 2 DIFFERENT SITES
     Route: 058
  7. TOCILIZUMAB [Suspect]
     Active Substance: TOCILIZUMAB
     Indication: Interstitial lung disease
  8. METHYLPREDNISOLONE [Suspect]
     Active Substance: METHYLPREDNISOLONE
     Indication: COVID-19
     Dosage: 80 MG, UNK
     Route: 065
  9. METHYLPREDNISOLONE [Suspect]
     Active Substance: METHYLPREDNISOLONE
     Dosage: 40 MG, DAILY
     Route: 065
  10. METHYLPREDNISOLONE [Suspect]
     Active Substance: METHYLPREDNISOLONE
     Dosage: 20 MG, DAILY
     Route: 065
  11. HYDROXYCHLOROQUINE [Interacting]
     Active Substance: HYDROXYCHLOROQUINE
     Indication: COVID-19
     Dosage: 200 MG, BID
     Route: 065
  12. HYDROXYCHLOROQUINE [Interacting]
     Active Substance: HYDROXYCHLOROQUINE
     Dosage: 400 MG, BID
     Route: 065

REACTIONS (18)
  - Metabolic acidosis [Fatal]
  - Acute hepatic failure [Fatal]
  - Liver function test [Fatal]
  - Septic shock [Fatal]
  - Drug interaction [Unknown]
  - Hypotension [Unknown]
  - Stupor [Unknown]
  - Herpes simplex viraemia [Unknown]
  - Anisocoria [Unknown]
  - Agitation [Unknown]
  - Neurological examination abnormal [Unknown]
  - Product use in unapproved indication [Unknown]
  - Shock haemorrhagic [Unknown]
  - Acute kidney injury [Unknown]
  - Confusional state [Unknown]
  - Product use issue [Unknown]
  - Off label use [Fatal]
  - Herpes simplex [Fatal]
